FAERS Safety Report 25879808 (Version 3)
Quarter: 2025Q4

REPORT INFORMATION
  Report Type: Report from Study
  Country: US (occurrence: US)
  Receive Date: 20251003
  Receipt Date: 20251019
  Transmission Date: 20260118
  Serious: Yes (Other)
  Sender: ABBVIE
  Company Number: US-ABBVIE-6486962

PATIENT
  Age: 84 Year
  Sex: Female
  Weight: 50.8 kg

DRUGS (6)
  1. VENCLEXTA [Suspect]
     Active Substance: VENETOCLAX
     Indication: Acute myeloid leukaemia
     Dosage: 400 MG?FORM STRENGTH: 100 MILLIGRAM
     Route: 048
     Dates: start: 20250428, end: 202508
  2. VENCLEXTA [Suspect]
     Active Substance: VENETOCLAX
     Indication: Acute myeloid leukaemia
     Dosage: 400 MG?FORM STRENGTH: 100 MILLIGRAM
     Route: 048
     Dates: start: 2025
  3. XOSPATA [Suspect]
     Active Substance: GILTERITINIB
     Indication: Product used for unknown indication
     Route: 065
  4. ALLOPURINOL [Concomitant]
     Active Substance: ALLOPURINOL
     Indication: Gout
  5. TYLENOL [Concomitant]
     Active Substance: ACETAMINOPHEN
     Indication: Product used for unknown indication
  6. ALPRAZOLAM [Concomitant]
     Active Substance: ALPRAZOLAM
     Indication: Product used for unknown indication

REACTIONS (5)
  - Haematocrit decreased [Recovered/Resolved]
  - Anaemia [Recovered/Resolved]
  - Platelet count decreased [Recovered/Resolved]
  - Haemoglobin decreased [Recovered/Resolved]
  - Thrombocytopenia [Recovered/Resolved]

NARRATIVE: CASE EVENT DATE: 20250918
